FAERS Safety Report 22639243 (Version 1)
Quarter: 2023Q2

REPORT INFORMATION
  Report Type: Spontaneous
  Country: FR (occurrence: FR)
  Receive Date: 20230626
  Receipt Date: 20230626
  Transmission Date: 20230721
  Serious: Yes (Hospitalization)
  Sender: FDA-Public Use
  Company Number: None

PATIENT
  Age: 71 Year
  Sex: Female

DRUGS (3)
  1. STELARA [Suspect]
     Active Substance: USTEKINUMAB
     Indication: Crohn^s disease
     Route: 058
     Dates: start: 20230515, end: 20230515
  2. STELARA [Suspect]
     Active Substance: USTEKINUMAB
  3. ZEJULA [Suspect]
     Active Substance: NIRAPARIB
     Indication: Product used for unknown indication
     Route: 048
     Dates: start: 20230510, end: 20230530

REACTIONS (1)
  - Thrombocytopenia [Recovering/Resolving]

NARRATIVE: CASE EVENT DATE: 20230530
